FAERS Safety Report 15537865 (Version 1)
Quarter: 2018Q4

REPORT INFORMATION
  Report Type: Report from Study
  Country: GB (occurrence: GB)
  Receive Date: 20181022
  Receipt Date: 20181022
  Transmission Date: 20190205
  Serious: No
  Sender: FDA-Public Use
  Company Number: GB-IPSEN BIOPHARMACEUTICALS, INC.-2018-15675

PATIENT
  Sex: Male

DRUGS (3)
  1. SOMATULINE AUTOGEL 90MG [Suspect]
     Active Substance: LANREOTIDE ACETATE
     Indication: PRODUCT USED FOR UNKNOWN INDICATION
  2. APIXABAN [Concomitant]
     Active Substance: APIXABAN
  3. CLEXANE [Concomitant]
     Active Substance: ENOXAPARIN SODIUM

REACTIONS (6)
  - Dysphonia [Unknown]
  - Asthenia [Unknown]
  - Neuropathy peripheral [Not Recovered/Not Resolved]
  - Arthralgia [Unknown]
  - Product dose omission [Unknown]
  - Nasopharyngitis [Unknown]
